FAERS Safety Report 8480195-3 (Version None)
Quarter: 2012Q2

REPORT INFORMATION
  Report Type: 
  Country: None (occurrence: None)
  Receive Date: 20120629
  Receipt Date: 20120627
  Transmission Date: 20120825
  Serious: Yes (Hospitalization, Disabling, Other)
  Sender: FDA-Public Use
  Company Number: US-MERCK-1205USA04390

PATIENT
  Age: 76 Year
  Sex: Female
  Weight: 55 kg

DRUGS (6)
  1. FOSAMAX [Suspect]
     Route: 048
     Dates: start: 20000101, end: 20080101
  2. FOSAMAX [Suspect]
     Indication: PROPHYLAXIS
     Route: 048
     Dates: start: 19960213, end: 20001001
  3. FOSAMAX [Suspect]
     Route: 048
     Dates: start: 20000101, end: 20080101
  4. DYAZIDE [Concomitant]
     Route: 048
  5. FOSAMAX [Suspect]
     Indication: OSTEOPOROSIS
     Route: 048
     Dates: start: 19960213, end: 20001001
  6. FOSAMAX [Suspect]
     Route: 048
     Dates: start: 20080101, end: 20100604

REACTIONS (37)
  - NORMOCHROMIC NORMOCYTIC ANAEMIA [None]
  - HYPERPARATHYROIDISM SECONDARY [None]
  - HYPERPARATHYROIDISM PRIMARY [None]
  - ABDOMINAL DISCOMFORT [None]
  - VOMITING [None]
  - TRANSIENT ISCHAEMIC ATTACK [None]
  - ACUTE SINUSITIS [None]
  - ADVERSE DRUG REACTION [None]
  - BONE DENSITY DECREASED [None]
  - ARTHRITIS [None]
  - HYPOPARATHYROIDISM [None]
  - HYPERCALCAEMIA [None]
  - FOOD ALLERGY [None]
  - ARTHROPATHY [None]
  - CEREBRAL HAEMORRHAGE [None]
  - MULTIPLE FRACTURES [None]
  - IRON DEFICIENCY ANAEMIA [None]
  - DRUG HYPERSENSITIVITY [None]
  - CATARACT [None]
  - BLOOD CHOLESTEROL INCREASED [None]
  - HYPOCALCAEMIA [None]
  - NICOTINE DEPENDENCE [None]
  - BLOOD GLUCOSE INCREASED [None]
  - OSTEOPOROSIS [None]
  - DEAFNESS [None]
  - VITAMIN D DEFICIENCY [None]
  - AMAUROSIS FUGAX [None]
  - CORONARY ARTERY DISEASE [None]
  - FEMUR FRACTURE [None]
  - TENDONITIS [None]
  - URTICARIA [None]
  - HYPONATRAEMIA [None]
  - BRONCHITIS [None]
  - DENTAL CARIES [None]
  - HYPERSENSITIVITY [None]
  - METABOLIC DISORDER [None]
  - RADICULOPATHY [None]
